FAERS Safety Report 25251798 (Version 2)
Quarter: 2025Q4

REPORT INFORMATION
  Report Type: Spontaneous
  Country: US (occurrence: US)
  Receive Date: 20250429
  Receipt Date: 20251001
  Transmission Date: 20260118
  Serious: Yes (Death, Other)
  Sender: TAIHO ONCOLOGY INC
  Company Number: US-TAIHOP-2025-004420

PATIENT
  Age: 71 Year
  Sex: Male
  Weight: 59.78 kg

DRUGS (2)
  1. LONSURF [Suspect]
     Active Substance: TIPIRACIL HYDROCHLORIDE\TRIFLURIDINE
     Indication: Colon cancer
     Dosage: CURRENT CYCLE UNKNOWN.?IN THE MORNING 60MG AND IN THE EVENING 45 MG (DAILY DOSE: 105MG).?DAILY DOSE:
     Route: 048
  2. LONSURF [Suspect]
     Active Substance: TIPIRACIL HYDROCHLORIDE\TRIFLURIDINE
     Dosage: CYCLE UNKNOWN.
     Route: 048

REACTIONS (2)
  - Death [Fatal]
  - Pneumonia [Unknown]

NARRATIVE: CASE EVENT DATE: 20250926
